FAERS Safety Report 20675245 (Version 15)
Quarter: 2023Q1

REPORT INFORMATION
  Report Type: Report from Study
  Country: US (occurrence: None)
  Receive Date: 20220405
  Receipt Date: 20230228
  Transmission Date: 20230417
  Serious: Yes (Other)
  Sender: FDA-Public Use
  Company Number: US-ROCHE-3059628

PATIENT
  Age: 90 Year
  Sex: Female
  Weight: 70.8 kg

DRUGS (39)
  1. RANIBIZUMAB [Suspect]
     Active Substance: RANIBIZUMAB
     Indication: Neovascular age-related macular degeneration
     Dosage: MOST RECENT DOSE OF 100 MG/ML PRIOR TO SAE: 04/FEB/2022, DOSE OF STUDY DRUG FIRST ADMINISTERED AND D
     Route: 050
     Dates: start: 20201019
  2. RANIBIZUMAB [Suspect]
     Active Substance: RANIBIZUMAB
  3. RANIBIZUMAB [Suspect]
     Active Substance: RANIBIZUMAB
  4. RANIBIZUMAB [Suspect]
     Active Substance: RANIBIZUMAB
  5. RANIBIZUMAB [Concomitant]
     Active Substance: RANIBIZUMAB
     Dosage: START DATE OF MOST RECENT DOSE OF STUDY DRUG PRIOR TO AE ON 21/SEP/2021?DOSE OF STUDY DRUG FIRST ADM
     Route: 050
     Dates: start: 20201207
  6. RANIBIZUMAB [Concomitant]
     Active Substance: RANIBIZUMAB
     Dosage: MEDICATION DOSE 10 MG/ML
     Route: 050
     Dates: start: 20220801, end: 20220801
  7. METOPROLOL [Concomitant]
     Active Substance: METOPROLOL
     Indication: Hypertension
     Route: 048
     Dates: start: 2008
  8. LOSARTAN [Concomitant]
     Active Substance: LOSARTAN
     Indication: Hypertension
     Route: 048
     Dates: start: 2008
  9. LEVOTHYROXINE [Concomitant]
     Active Substance: LEVOTHYROXINE
     Indication: Hypothyroidism
     Route: 048
     Dates: start: 2008
  10. PROAIR HFA [Concomitant]
     Active Substance: ALBUTEROL SULFATE
     Indication: Emphysema
     Route: 055
     Dates: start: 2008
  11. ALPRAZOLAM [Concomitant]
     Active Substance: ALPRAZOLAM
     Indication: Anxiety
     Route: 048
     Dates: start: 2008
  12. FUROSEMIDE [Concomitant]
     Active Substance: FUROSEMIDE
     Route: 048
     Dates: start: 2008
  13. HYDROCODONE [Concomitant]
     Active Substance: HYDROCODONE
     Indication: Arthralgia
     Route: 048
  14. CHOLECALCIFEROL [Concomitant]
     Active Substance: CHOLECALCIFEROL
     Indication: Osteoporosis
     Route: 048
  15. SYSTANE (HYPROMELLOSE 2910 (4000 MPA.S)) [Concomitant]
     Active Substance: HYPROMELLOSE 2910 (4000 MPA.S)
     Indication: Dry eye
     Route: 061
     Dates: start: 2015
  16. PLAVIX [Concomitant]
     Active Substance: CLOPIDOGREL BISULFATE
     Indication: Myocardial infarction
     Route: 048
     Dates: start: 20211024, end: 20220410
  17. PLAVIX [Concomitant]
     Active Substance: CLOPIDOGREL BISULFATE
     Route: 048
     Dates: start: 20221104
  18. ATORVASTATIN [Concomitant]
     Active Substance: ATORVASTATIN
     Indication: Hypercholesterolaemia
     Route: 048
     Dates: start: 20211024
  19. METOPROLOL SUCCINATE [Concomitant]
     Active Substance: METOPROLOL SUCCINATE
     Indication: Hypertension
     Route: 048
     Dates: start: 20211024
  20. OMEPRAZOLE [Concomitant]
     Active Substance: OMEPRAZOLE
     Indication: Gastrooesophageal reflux disease
     Route: 048
     Dates: start: 20211024
  21. VITAMIN C [Concomitant]
     Active Substance: ASCORBIC ACID
     Route: 048
     Dates: start: 20200303
  22. PROTONIX [Concomitant]
     Active Substance: PANTOPRAZOLE SODIUM
     Indication: Gastrooesophageal reflux disease
     Route: 048
     Dates: start: 20220204
  23. ELIQUIS [Concomitant]
     Active Substance: APIXABAN
     Indication: Prophylaxis
     Route: 048
     Dates: start: 20220204, end: 20220518
  24. AMIODARONE [Concomitant]
     Active Substance: AMIODARONE
     Indication: Ventricular arrhythmia
     Route: 048
     Dates: start: 20220313
  25. RANIBIZUMAB [Concomitant]
     Active Substance: RANIBIZUMAB
     Dosage: START DATE OF MOST RECENT DOSE OF STUDY DRUG PRIOR TO SAE ON 21/SEP/2021
     Route: 050
     Dates: start: 20201207
  26. RANIBIZUMAB [Concomitant]
     Active Substance: RANIBIZUMAB
     Dosage: 10 MG/ML
     Route: 050
     Dates: start: 20220531, end: 20220531
  27. RANIBIZUMAB [Concomitant]
     Active Substance: RANIBIZUMAB
     Dosage: 10 MG/ML
     Route: 050
     Dates: start: 20220801, end: 20220801
  28. LUCENTIS [Concomitant]
     Active Substance: RANIBIZUMAB
     Indication: Retinal haemorrhage
     Route: 050
     Dates: start: 20220429, end: 20220429
  29. LUCENTIS [Concomitant]
     Active Substance: RANIBIZUMAB
     Route: 050
     Dates: start: 20220629, end: 20220629
  30. LUCENTIS [Concomitant]
     Active Substance: RANIBIZUMAB
     Route: 050
     Dates: start: 20220829, end: 20220829
  31. LUCENTIS [Concomitant]
     Active Substance: RANIBIZUMAB
     Dosage: MG
     Route: 050
     Dates: start: 20220531, end: 20220531
  32. LUCENTIS [Concomitant]
     Active Substance: RANIBIZUMAB
     Dosage: MG
     Route: 047
     Dates: start: 20220927, end: 20220927
  33. LUCENTIS [Concomitant]
     Active Substance: RANIBIZUMAB
     Dosage: MG
     Route: 050
     Dates: start: 20220801, end: 20220801
  34. LUCENTIS [Concomitant]
     Active Substance: RANIBIZUMAB
     Route: 050
     Dates: start: 20221024, end: 20221024
  35. LUCENTIS [Concomitant]
     Active Substance: RANIBIZUMAB
     Dosage: MG
     Route: 050
     Dates: start: 20221130, end: 20221130
  36. LUCENTIS [Concomitant]
     Active Substance: RANIBIZUMAB
     Route: 047
     Dates: start: 20230111, end: 20230111
  37. LUCENTIS [Concomitant]
     Active Substance: RANIBIZUMAB
     Route: 047
     Dates: start: 20230213, end: 20230213
  38. JARDIANCE [Concomitant]
     Active Substance: EMPAGLIFLOZIN
     Indication: Myocardial infarction
     Dosage: MG
     Route: 048
     Dates: start: 20220918
  39. ASPIRIN [Concomitant]
     Active Substance: ASPIRIN
     Indication: Myocardial infarction
     Route: 048
     Dates: start: 20221104

REACTIONS (3)
  - Device issue [Unknown]
  - Device dislocation [Unknown]
  - No adverse event [Unknown]

NARRATIVE: CASE EVENT DATE: 20220314
